FAERS Safety Report 9281864 (Version 1)
Quarter: 2013Q2

REPORT INFORMATION
  Report Type: Spontaneous
  Country: US (occurrence: US)
  Receive Date: 20130510
  Receipt Date: 20130510
  Transmission Date: 20140414
  Serious: No
  Sender: FDA-Public Use
  Company Number: US-009507513-1305USA004375

PATIENT
  Sex: Female

DRUGS (2)
  1. PEGINTRON [Suspect]
     Indication: HEPATITIS C
     Dosage: REDIPEN
     Dates: start: 20130225
  2. REBETOL [Suspect]
     Indication: PROPHYLAXIS
     Dosage: UNK
     Dates: start: 20130225

REACTIONS (4)
  - Muscular weakness [Unknown]
  - Parosmia [Unknown]
  - Nausea [Recovering/Resolving]
  - Malaise [Unknown]
